FAERS Safety Report 15827111 (Version 2)
Quarter: 2019Q3

REPORT INFORMATION
  Report Type: Spontaneous
  Country: PR (occurrence: PR)
  Receive Date: 20190115
  Receipt Date: 20190705
  Transmission Date: 20191004
  Serious: Yes (Other)
  Sender: FDA-Public Use
  Company Number: PR-PFIZER INC-2019018162

PATIENT
  Age: 58 Year
  Sex: Female
  Weight: 62 kg

DRUGS (2)
  1. IBRANCE [Suspect]
     Active Substance: PALBOCICLIB
     Indication: BREAST CANCER FEMALE
     Dosage: 125 MG, DAILY
     Route: 048
     Dates: start: 20181218
  2. IBRANCE [Suspect]
     Active Substance: PALBOCICLIB
     Dosage: 125 MG, CYCLIC (1 CAPSULE DAILY ON 21 DAYS AND 7 DAYS OFF)
     Route: 048
     Dates: start: 20181218

REACTIONS (6)
  - Cerebrovascular accident [Unknown]
  - Blindness [Unknown]
  - Neoplasm progression [Unknown]
  - Fatigue [Unknown]
  - Alopecia [Unknown]
  - Muscular weakness [Unknown]

NARRATIVE: CASE EVENT DATE: 20190626
